FAERS Safety Report 21088921 (Version 1)
Quarter: 2022Q3

REPORT INFORMATION
  Report Type: Spontaneous
  Country: US (occurrence: US)
  Receive Date: 20220715
  Receipt Date: 20220715
  Transmission Date: 20221026
  Serious: Yes (Other)
  Sender: FDA-Public Use
  Company Number: US-FreseniusKabi-FK202209793

PATIENT

DRUGS (7)
  1. HEPARIN SODIUM [Suspect]
     Active Substance: HEPARIN SODIUM
     Indication: Product used for unknown indication
     Dosage: AT 0837, 2000 UNITS IV ADMINISTERED.
     Route: 042
  2. HEPARIN SODIUM [Suspect]
     Active Substance: HEPARIN SODIUM
     Dosage: AT 0854, 5000 UNITS IV ADMINISTERED.
     Route: 042
  3. HEPARIN SODIUM [Suspect]
     Active Substance: HEPARIN SODIUM
     Dosage: AT 0928, 3000 UNITS IV ADMINISTERED
     Route: 042
  4. HEPARIN SODIUM [Suspect]
     Active Substance: HEPARIN SODIUM
     Dosage: AT 1018, 3000 UNITS IV ADMINISTERED
     Route: 042
  5. HEPARIN SODIUM [Suspect]
     Active Substance: HEPARIN SODIUM
     Dosage: AT 1120, 1000 UNITS IV ADMINISTERED
     Route: 042
  6. EFFIENT [Suspect]
     Active Substance: PRASUGREL HYDROCHLORIDE
     Indication: Product used for unknown indication
     Dosage: AT 0853, 60 MG PO ADMINISTERED
     Route: 048
  7. lntegrellin [Concomitant]
     Indication: Product used for unknown indication
     Route: 042

REACTIONS (3)
  - Vascular stent thrombosis [Unknown]
  - Chest pain [Unknown]
  - Drug ineffective [Unknown]
